FAERS Safety Report 7780533-0 (Version None)
Quarter: 2011Q3

REPORT INFORMATION
  Report Type: 
  Country: None (occurrence: None)
  Receive Date: 20110927
  Receipt Date: 20110127
  Transmission Date: 20111222
  Serious: No
  Sender: FDA-Public Use
  Company Number: US-ASTRAZENECA-2011SE04366

PATIENT
  Age: 58 Year
  Sex: Female
  Weight: 81.6 kg

DRUGS (6)
  1. SEROQUEL [Suspect]
     Indication: ANXIETY
     Route: 048
  2. WELLBUTRIN [Concomitant]
     Indication: DEPRESSION
  3. KLONOPIN [Concomitant]
     Indication: ANXIETY
  4. CYMBALTA [Concomitant]
     Indication: DEPRESSION
  5. SEROQUEL [Suspect]
     Indication: DEPRESSION
     Route: 048
  6. AMBIEN [Concomitant]
     Indication: SLEEP DISORDER

REACTIONS (3)
  - SPEECH DISORDER [None]
  - LARYNGITIS [None]
  - PNEUMONIA [None]
